FAERS Safety Report 5167670-4 (Version None)
Quarter: 2006Q4

REPORT INFORMATION
  Report Type: 
  Country: None (occurrence: None)
  Receive Date: 20061201
  Receipt Date: 20061201
  Transmission Date: 20070319
  Serious: Yes (Other)
  Sender: FDA-Public Use
  Company Number: None

PATIENT
  Age: 36 Year
  Sex: Female

DRUGS (2)
  1. ASMANEX TWISTHALER [Suspect]
     Indication: ASTHMA
     Dosage: 440 MCG DAILY INHAL
     Route: 055
     Dates: start: 20061025, end: 20061105
  2. SINGULAIR [Concomitant]

REACTIONS (5)
  - DYSPNOEA [None]
  - FATIGUE [None]
  - HEADACHE [None]
  - HYPOAESTHESIA [None]
  - NAUSEA [None]
